FAERS Safety Report 5702214-7 (Version None)
Quarter: 2008Q2

REPORT INFORMATION
  Report Type: 
  Country: None (occurrence: None)
  Receive Date: 20080411
  Receipt Date: 20071220
  Transmission Date: 20081010
  Serious: No
  Sender: FDA-Public Use
  Company Number: US-ABBOTT-07P-163-0431437-00

PATIENT
  Sex: Female
  Weight: 54.48 kg

DRUGS (2)
  1. DEPAKOTE [Suspect]
     Indication: CONVULSION
     Route: 048
     Dates: start: 20071016, end: 20071220
  2. DEPAKOTE ER [Suspect]
     Indication: CONVULSION
     Route: 048
     Dates: start: 20070628, end: 20070901

REACTIONS (2)
  - ABDOMINAL PAIN [None]
  - NAUSEA [None]
